FAERS Safety Report 8431215-3 (Version None)
Quarter: 2012Q2

REPORT INFORMATION
  Report Type: 
  Country: None (occurrence: None)
  Receive Date: 20120612
  Receipt Date: 20120606
  Transmission Date: 20120825
  Serious: Yes (Hospitalization)
  Sender: FDA-Public Use
  Company Number: US-B.I. PHARMACEUTICALS,INC./RIDGEFIELD-2012-BP-13109BP

PATIENT
  Age: 55 Year
  Sex: Male

DRUGS (3)
  1. GLYBURIDE [Concomitant]
     Indication: TYPE 2 DIABETES MELLITUS
  2. METFORMIN HCL [Concomitant]
     Indication: TYPE 2 DIABETES MELLITUS
  3. TRADJENTA [Suspect]
     Indication: TYPE 2 DIABETES MELLITUS
     Dosage: 5 MG

REACTIONS (1)
  - PANCREATITIS [None]
